FAERS Safety Report 10145444 (Version 2)
Quarter: 2014Q2

REPORT INFORMATION
  Report Type: Spontaneous
  Country: PL (occurrence: PL)
  Receive Date: 20140501
  Receipt Date: 20140509
  Transmission Date: 20141212
  Serious: Yes (Hospitalization, Other)
  Sender: FDA-Public Use
  Company Number: PL-MERCK-1404POL015129

PATIENT
  Age: 59 Year
  Sex: Male
  Weight: 62 kg

DRUGS (7)
  1. VICTRELIS [Suspect]
     Indication: HEPATITIS C
     Dosage: 800 MG, TID
     Route: 048
     Dates: start: 20130710
  2. PEGINTRON [Suspect]
     Indication: HEPATITIS C
     Dosage: 80 MICROGRAM, QW
     Route: 058
     Dates: start: 20130611
  3. REBETOL [Suspect]
     Indication: HEPATITIS C
     Dosage: 400 MG, BID
     Route: 048
     Dates: start: 20130611
  4. REBETOL [Suspect]
     Dosage: UNK
     Route: 048
  5. CAPTOPRIL [Concomitant]
     Indication: HYPERTENSION
     Dosage: 25 MG DAILY (2 X 12.5 MG)
     Dates: start: 2012
  6. URSOFALK [Concomitant]
     Indication: HEPATITIS C
     Dosage: 250 MG, QD
     Dates: start: 2012
  7. SPIRONOL [Concomitant]
     Indication: HEPATITIS C
     Dosage: 1 X 25 MG
     Dates: start: 2012

REACTIONS (2)
  - Transfusion [Unknown]
  - Anaemia [Recovered/Resolved]
